FAERS Safety Report 13860703 (Version 2)
Quarter: 2017Q4

REPORT INFORMATION
  Report Type: Spontaneous
  Country: US (occurrence: US)
  Receive Date: 20170811
  Receipt Date: 20171204
  Transmission Date: 20180320
  Serious: Yes (Other)
  Sender: FDA-Public Use
  Company Number: US-BAYER-2017-153604

PATIENT
  Age: 23 Year
  Sex: Female
  Weight: 78.2 kg

DRUGS (2)
  1. MIRENA [Suspect]
     Active Substance: LEVONORGESTREL
  2. MIRENA [Suspect]
     Active Substance: LEVONORGESTREL
     Dosage: 20 MCG/24HR, CONT
     Route: 015
     Dates: start: 20170518, end: 20170616

REACTIONS (11)
  - Ovarian germ cell teratoma benign [None]
  - Vaginal discharge [None]
  - Abdominal pain lower [None]
  - Cervical discharge [None]
  - Pelvic inflammatory disease [None]
  - Ovarian cyst [None]
  - Device dislocation [None]
  - Bacterial vaginosis [None]
  - Vaginal haemorrhage [None]
  - Pain [None]
  - Abdominal pain [None]

NARRATIVE: CASE EVENT DATE: 20170602
